FAERS Safety Report 9439223 (Version 1)
Quarter: 2013Q3

REPORT INFORMATION
  Report Type: Spontaneous
  Country: SE (occurrence: SE)
  Receive Date: 20130804
  Receipt Date: 20130804
  Transmission Date: 20140515
  Serious: Yes (Hospitalization)
  Sender: FDA-Public Use
  Company Number: SE-JNJFOC-20130717545

PATIENT
  Age: 31 Year
  Sex: Male

DRUGS (1)
  1. SIMPONI [Suspect]
     Indication: ANKYLOSING SPONDYLITIS
     Route: 058
     Dates: start: 20110831, end: 20121122

REACTIONS (4)
  - Weight decreased [Unknown]
  - Stomatitis [Recovered/Resolved]
  - Pharyngitis [Recovered/Resolved]
  - Tonsillitis [Recovered/Resolved]
